FAERS Safety Report 15233628 (Version 1)
Quarter: 2018Q3

REPORT INFORMATION
  Report Type: Spontaneous
  Country: US (occurrence: US)
  Receive Date: 20180802
  Receipt Date: 20180802
  Transmission Date: 20181010
  Serious: Yes (Other)
  Sender: FDA-Public Use
  Company Number: US-CIPLA LTD.-2018US20448

PATIENT

DRUGS (13)
  1. LEVETIRACETAM. [Suspect]
     Active Substance: LEVETIRACETAM
     Indication: EYELID MYOCLONUS
     Dosage: UNK
     Route: 065
  2. CLONAZEPAM. [Suspect]
     Active Substance: CLONAZEPAM
     Indication: PETIT MAL EPILEPSY
  3. CLOBAZAM [Suspect]
     Active Substance: CLOBAZAM
     Indication: EYELID MYOCLONUS
     Dosage: 0.5 MG/KG, PER DAY
     Route: 065
  4. LEVETIRACETAM. [Suspect]
     Active Substance: LEVETIRACETAM
     Indication: PETIT MAL EPILEPSY
  5. CLONAZEPAM. [Suspect]
     Active Substance: CLONAZEPAM
     Indication: EYELID MYOCLONUS
     Dosage: UNK
     Route: 065
  6. VALPROATE [Suspect]
     Active Substance: VALPROIC ACID
     Indication: PETIT MAL EPILEPSY
     Dosage: 25 MG/KG, PER DAY
     Route: 065
  7. LAMOTRIGINE. [Suspect]
     Active Substance: LAMOTRIGINE
     Indication: PETIT MAL EPILEPSY
  8. ETHOSUXIMIDE. [Suspect]
     Active Substance: ETHOSUXIMIDE
     Indication: EYELID MYOCLONUS
     Dosage: UNK
     Route: 065
  9. ETHOSUXIMIDE. [Suspect]
     Active Substance: ETHOSUXIMIDE
     Indication: PETIT MAL EPILEPSY
  10. VALPROATE [Suspect]
     Active Substance: VALPROIC ACID
     Indication: EYELID MYOCLONUS
     Dosage: 500 MG, BID
     Route: 065
  11. LAMOTRIGINE. [Suspect]
     Active Substance: LAMOTRIGINE
     Indication: EYELID MYOCLONUS
     Dosage: UNK
     Route: 065
  12. CLOBAZAM [Suspect]
     Active Substance: CLOBAZAM
     Indication: PETIT MAL EPILEPSY
  13. VALPROATE [Suspect]
     Active Substance: VALPROIC ACID
     Dosage: 20 MG/KG PER DAY
     Route: 065

REACTIONS (1)
  - Treatment failure [Unknown]
